FAERS Safety Report 8347024-X (Version None)
Quarter: 2012Q2

REPORT INFORMATION
  Report Type: 
  Country: None (occurrence: None)
  Receive Date: 20120509
  Receipt Date: 20120424
  Transmission Date: 20120825
  Serious: Yes (Hospitalization)
  Sender: FDA-Public Use
  Company Number: PHHY2010US55098

PATIENT
  Sex: Female
  Weight: 71 kg

DRUGS (4)
  1. EXJADE [Suspect]
     Indication: SICKLE CELL ANAEMIA
     Dosage: 1500 MG, DAILY
     Route: 048
     Dates: start: 20070301
  2. BLOOD TRANSFUSION, AUXILIARY PRODUCTS [Concomitant]
  3. EXJADE [Suspect]
     Indication: SICKLE CELL ANAEMIA WITH CRISIS
     Dosage: 1000 MG, DAILY
     Route: 048
  4. EXJADE [Suspect]
     Indication: IRON OVERLOAD
     Dosage: 500 MG, BID
     Route: 048
     Dates: start: 20091201

REACTIONS (6)
  - BLOOD BILIRUBIN INCREASED [None]
  - SICKLE CELL ANAEMIA WITH CRISIS [None]
  - BLOOD CREATINE INCREASED [None]
  - CHEST PAIN [None]
  - ANAEMIA [None]
  - INCORRECT DOSE ADMINISTERED [None]
